FAERS Safety Report 7461719-1 (Version None)
Quarter: 2011Q2

REPORT INFORMATION
  Report Type: 
  Country: None (occurrence: None)
  Receive Date: 20110506
  Receipt Date: 20110411
  Transmission Date: 20111010
  Serious: No
  Sender: FDA-Public Use
  Company Number: US-BAYER-2011-032037

PATIENT
  Age: 57 Year
  Sex: Female

DRUGS (1)
  1. AVELOX [Suspect]
     Indication: INFECTION
     Dosage: 400 MG, QD
     Route: 048
     Dates: start: 20110404, end: 20110404

REACTIONS (2)
  - TENDON DISORDER [None]
  - OEDEMA PERIPHERAL [None]
